FAERS Safety Report 21341881 (Version 4)
Quarter: 2023Q2

REPORT INFORMATION
  Report Type: Spontaneous
  Country: MY (occurrence: MY)
  Receive Date: 20220916
  Receipt Date: 20230508
  Transmission Date: 20230721
  Serious: Yes (Other)
  Sender: FDA-Public Use
  Company Number: MY-SA-SAC20220909000384

PATIENT
  Age: 27 Year
  Sex: Female

DRUGS (7)
  1. ARAVA [Suspect]
     Active Substance: LEFLUNOMIDE
     Indication: Rheumatoid arthritis
     Dosage: 20 MG, QD
     Route: 065
     Dates: start: 202202
  2. CHOLESTYRAMINE [Suspect]
     Active Substance: CHOLESTYRAMINE
     Dosage: 8 G, TID
  3. CHARCOAL [Suspect]
     Active Substance: ACTIVATED CHARCOAL
     Dosage: 50 G, QID
     Dates: start: 20220906
  4. ADALIMUMAB [Concomitant]
     Active Substance: ADALIMUMAB
  5. NAPROXEN [Concomitant]
     Active Substance: NAPROXEN
  6. ISONIAZID [Concomitant]
     Active Substance: ISONIAZID
  7. METHOTREXATE [Concomitant]
     Active Substance: METHOTREXATE
     Dosage: 25 MG, QW
     Route: 058

REACTIONS (3)
  - Amniotic fluid volume decreased [Unknown]
  - Breech presentation [Unknown]
  - Exposure during pregnancy [Unknown]
